FAERS Safety Report 8484802-0 (Version None)
Quarter: 2012Q3

REPORT INFORMATION
  Report Type: 
  Country: None (occurrence: None)
  Receive Date: 20120703
  Receipt Date: 20120625
  Transmission Date: 20120928
  Serious: Yes (Hospitalization)
  Sender: FDA-Public Use
  Company Number: US-BAYER-2011-022155

PATIENT
  Age: 35 Year
  Sex: Female
  Weight: 102.4 kg

DRUGS (10)
  1. ALLEGRA [Concomitant]
     Dosage: 180 MG, DAILY
     Dates: start: 20040501
  2. ULTRACET [Concomitant]
     Dosage: 1 / EVERY 4 HOURS
     Dates: start: 20040501
  3. FLEXERIL [Concomitant]
     Dosage: 10 MG, TID
     Dates: start: 20040501
  4. ZANTAC [Concomitant]
     Dosage: UNK UNK, PRN
     Dates: start: 20040501
  5. METFORMIN HCL [Concomitant]
     Dosage: 500 MG, BID
  6. YASMIN [Suspect]
     Indication: CONTRACEPTION
     Dosage: UNK
     Route: 048
     Dates: start: 20021101, end: 20040501
  7. ASCORBIC ACID [Concomitant]
     Dosage: 500 MG, UNK
     Dates: start: 20000101
  8. GLUCOPHAGE [Concomitant]
     Dosage: 500 MG, BID
     Dates: start: 20040501
  9. MULTI-VITAMIN [Concomitant]
     Dosage: UNK
     Dates: start: 20040501
  10. CALCIUM [Concomitant]
     Dosage: 500 MG, UNK
     Route: 048
     Dates: start: 20000101

REACTIONS (3)
  - DEEP VEIN THROMBOSIS [None]
  - INJURY [None]
  - PAIN [None]
